FAERS Safety Report 8075572-9 (Version None)
Quarter: 2012Q1

REPORT INFORMATION
  Report Type: 
  Country: None (occurrence: None)
  Receive Date: 20120127
  Receipt Date: 20120120
  Transmission Date: 20120608
  Serious: Yes (Other)
  Sender: FDA-Public Use
  Company Number: US-BRISTOL-MYERS SQUIBB COMPANY-16360935

PATIENT
  Age: 58 Year
  Sex: Female

DRUGS (10)
  1. XANAX [Concomitant]
  2. SINGULAIR [Concomitant]
  3. SYMBICORT [Concomitant]
  4. ORENCIA [Suspect]
     Dosage: INITIAL ROUTE WAS IV
     Route: 058
  5. LASIX [Concomitant]
  6. SYNTHROID [Concomitant]
  7. METHADONE HCL [Suspect]
  8. BONIVA [Concomitant]
  9. VENTOLIN [Concomitant]
  10. LEXAPRO [Concomitant]

REACTIONS (2)
  - PULMONARY FIBROSIS [None]
  - NIGHT SWEATS [None]
